FAERS Safety Report 8289252-8 (Version None)
Quarter: 2012Q2

REPORT INFORMATION
  Report Type: 
  Country: None (occurrence: None)
  Receive Date: 20120417
  Receipt Date: 20120411
  Transmission Date: 20120825
  Serious: Yes (Death)
  Sender: FDA-Public Use
  Company Number: PHEH2012US007857

PATIENT
  Sex: Male

DRUGS (6)
  1. LASIX [Concomitant]
     Dosage: 20 MG, UNK
  2. POTASSIUM [Concomitant]
     Dosage: 75 MG, UNK
  3. SPIRONOLACTONE [Concomitant]
     Dosage: 25 MG, UNK
  4. DILAUDID [Concomitant]
     Dosage: 02 MG, UNK
  5. SUTENT [Concomitant]
     Dosage: 25 MG, UNK
  6. GLEEVEC [Suspect]
     Dosage: 400 MG, QD
     Route: 048

REACTIONS (1)
  - DEATH [None]
